FAERS Safety Report 23613551 (Version 1)
Quarter: 2024Q1

REPORT INFORMATION
  Report Type: Spontaneous
  Country: US (occurrence: US)
  Receive Date: 20240309
  Receipt Date: 20240309
  Transmission Date: 20240410
  Serious: Yes (Hospitalization, Other)
  Sender: FDA-Public Use
  Company Number: US-JNJFOC-20240305070

PATIENT
  Age: 75 Year
  Sex: Female

DRUGS (1)
  1. XARELTO [Suspect]
     Active Substance: RIVAROXABAN
     Indication: Pulmonary embolism
     Route: 048

REACTIONS (9)
  - Pulmonary thrombosis [Unknown]
  - Fall [Unknown]
  - Chest injury [Unknown]
  - Stomatitis [Unknown]
  - Adverse drug reaction [Unknown]
  - COVID-19 [Unknown]
  - Urinary tract infection [Unknown]
  - Gait inability [Unknown]
  - Dyspnoea [Unknown]
